FAERS Safety Report 17161434 (Version 4)
Quarter: 2022Q4

REPORT INFORMATION
  Report Type: Report from Study
  Country: JP (occurrence: JP)
  Receive Date: 20191216
  Receipt Date: 20221130
  Transmission Date: 20230113
  Serious: Yes (Disabling, Other)
  Sender: FDA-Public Use
  Company Number: JP-ALEXION-A201808933

PATIENT
  Age: 8 Year
  Sex: Female
  Weight: 10.9 kg

DRUGS (23)
  1. ALFAROL [Suspect]
     Active Substance: ALFACALCIDOL
     Indication: Hypophosphatasia
     Dosage: 1 ML, QD
     Route: 048
     Dates: end: 20180912
  2. ALFAROL [Suspect]
     Active Substance: ALFACALCIDOL
     Dosage: 1 ML, QD
     Route: 048
     Dates: start: 20181005, end: 20181115
  3. ALFAROL [Suspect]
     Active Substance: ALFACALCIDOL
     Dosage: 2 ML, QD
     Route: 048
     Dates: start: 20180913, end: 20181004
  4. STRENSIQ [Suspect]
     Active Substance: ASFOTASE ALFA
     Dosage: 1.6 MG/KG, TIW
     Route: 058
     Dates: start: 20180608, end: 20180730
  5. STRENSIQ [Suspect]
     Active Substance: ASFOTASE ALFA
     Dosage: 1.6 MG/KG, TIW
     Route: 058
     Dates: start: 20181109, end: 20181130
  6. STRENSIQ [Suspect]
     Active Substance: ASFOTASE ALFA
     Dosage: 1.8 MG/KG, SINGLE
     Route: 058
     Dates: start: 20181107, end: 20181108
  7. STRENSIQ [Suspect]
     Active Substance: ASFOTASE ALFA
     Indication: Hypophosphatasia
     Dosage: 2 MG/KG, TIW
     Route: 058
     Dates: start: 20151002, end: 20180606
  8. STRENSIQ [Suspect]
     Active Substance: ASFOTASE ALFA
     Dosage: 2 MG/KG, TIW
     Route: 058
     Dates: start: 20180801, end: 20181102
  9. STRENSIQ [Suspect]
     Active Substance: ASFOTASE ALFA
     Dosage: 2 MG/KG, TIW
     Route: 058
     Dates: start: 20181203
  10. CARBOCYSTEINE [Concomitant]
     Active Substance: CARBOCYSTEINE
     Indication: Prophylaxis
     Dosage: 100 MG, TID
     Route: 048
  11. LEVETIRACETAM [Concomitant]
     Active Substance: LEVETIRACETAM
     Dosage: 110 MG, BID
     Route: 048
     Dates: start: 20180817, end: 20190108
  12. LEVETIRACETAM [Concomitant]
     Active Substance: LEVETIRACETAM
     Dosage: 150 MG, BID
     Route: 048
     Dates: start: 20190109, end: 20190216
  13. LEVETIRACETAM [Concomitant]
     Active Substance: LEVETIRACETAM
     Indication: Hypophosphatasia
     Dosage: 160 MG, BID
     Route: 048
     Dates: end: 20180816
  14. LEVETIRACETAM [Concomitant]
     Active Substance: LEVETIRACETAM
     Dosage: 225 MG, BID
     Route: 048
     Dates: start: 20190217
  15. LEVOCARNITINE [Concomitant]
     Active Substance: LEVOCARNITINE
     Indication: Prophylaxis
     Dosage: 1 ML, TID
     Route: 048
  16. MUCOSAL                            /00082801/ [Concomitant]
     Indication: Prophylaxis
     Dosage: 3 MG, TID
     Route: 048
  17. PHENOBAL                           /00023201/ [Concomitant]
     Dosage: 27.5 MG, BID
     Route: 048
     Dates: start: 20180809, end: 20180816
  18. PHENOBAL                           /00023201/ [Concomitant]
     Dosage: 44 MG, BID
     Route: 048
     Dates: start: 20180817, end: 20190226
  19. PHENOBAL                           /00023201/ [Concomitant]
     Dosage: 45 MG, BID
     Route: 048
     Dates: start: 20190227
  20. PHENOBAL                           /00023201/ [Concomitant]
     Indication: Hypophosphatasia
     Dosage: 55 MG, BID
     Route: 048
     Dates: end: 20180809
  21. PYRIDOXINE [Concomitant]
     Active Substance: PYRIDOXINE
     Indication: Hypophosphatasia
     Dosage: 225 MG, BID
     Route: 048
     Dates: end: 20190120
  22. RIVOTRIL [Concomitant]
     Active Substance: CLONAZEPAM
     Indication: Hypophosphatasia
     Dosage: 2.5 MG, BID
     Route: 048
  23. VITAMIN B6 [Concomitant]
     Active Substance: PYRIDOXINE HYDROCHLORIDE
     Indication: Hypophosphatasia
     Dosage: 225 MG, BID
     Route: 048
     Dates: start: 20190121

REACTIONS (8)
  - Congenital musculoskeletal disorder of skull [Not Recovered/Not Resolved]
  - Talipes [Not Recovered/Not Resolved]
  - Deafness neurosensory [Unknown]
  - Nephrocalcinosis [Recovered/Resolved]
  - Nephrolithiasis [Recovered/Resolved]
  - Drug specific antibody present [Unknown]
  - Tooth loss [Not Recovered/Not Resolved]
  - Drug ineffective [Unknown]

NARRATIVE: CASE EVENT DATE: 20180710
